FAERS Safety Report 21324693 (Version 1)
Quarter: 2022Q3

REPORT INFORMATION
  Report Type: Spontaneous
  Country: BR (occurrence: BR)
  Receive Date: 20220912
  Receipt Date: 20220912
  Transmission Date: 20221027
  Serious: Yes (Other)
  Sender: FDA-Public Use
  Company Number: BR-TAKEDA-2022TUS062476

PATIENT

DRUGS (2)
  1. ICATIBANT [Suspect]
     Active Substance: ICATIBANT ACETATE
     Indication: Hereditary angioedema
     Dosage: UNK
     Route: 065
  2. ICATIBANT [Suspect]
     Active Substance: ICATIBANT ACETATE
     Indication: Hereditary angioedema
     Dosage: UNK
     Route: 065

REACTIONS (12)
  - Angioedema [Recovered/Resolved]
  - Haemorrhage [Unknown]
  - Injection site erythema [Unknown]
  - Application site pain [Unknown]
  - Contusion [Unknown]
  - Hyperaemia [Unknown]
  - Pain [Unknown]
  - Localised oedema [Unknown]
  - Vomiting [Unknown]
  - Oedema [Unknown]
  - Nausea [Unknown]
  - Erythema [Unknown]
